FAERS Safety Report 7121538-2 (Version None)
Quarter: 2010Q4

REPORT INFORMATION
  Report Type: 
  Country: None (occurrence: None)
  Receive Date: 20101119
  Receipt Date: 20101119
  Transmission Date: 20110411
  Serious: No
  Sender: FDA-Public Use
  Company Number: None

PATIENT
  Age: 67 Year
  Sex: Male

DRUGS (10)
  1. REVLIMID [Suspect]
     Indication: AMYLOIDOSIS
     Dosage: 25MG DAILY 21D/28D ORALLY
     Route: 048
  2. DECADRON [Concomitant]
  3. ASPIRIN [Concomitant]
  4. MEGESTROL ACETATE [Concomitant]
  5. VICODIN [Concomitant]
  6. NORTRIPTYLINE [Concomitant]
  7. ZOLPIDEM [Concomitant]
  8. PROAIR HFA [Concomitant]
  9. VITAMIN D [Concomitant]
  10. PROTONIX [Concomitant]

REACTIONS (2)
  - DRUG ERUPTION [None]
  - RASH MACULO-PAPULAR [None]
